FAERS Safety Report 5154173-6 (Version None)
Quarter: 2006Q4

REPORT INFORMATION
  Report Type: 
  Country: None (occurrence: None)
  Receive Date: 20061116
  Receipt Date: 20061116
  Transmission Date: 20070319
  Serious: Yes (Hospitalization)
  Sender: FDA-Public Use
  Company Number: None

PATIENT
  Age: 48 Year
  Sex: Male
  Weight: 79 kg

DRUGS (10)
  1. AMIODARONE HCL [Suspect]
     Indication: VENTRICULAR TACHYCARDIA
     Dosage: 200 MG  BID PO
     Route: 048
  2. DILANTIN [Concomitant]
  3. ASPIRIN [Concomitant]
  4. PREVACID [Concomitant]
  5. K-DUR 10 [Concomitant]
  6. PAROXETINE HCL [Concomitant]
  7. ADVAIR DISKUS 100/50 [Concomitant]
  8. SPIRONOLACTONE [Concomitant]
  9. COUMADIN [Concomitant]
  10. LASIX [Concomitant]

REACTIONS (1)
  - HEPATITIS [None]
